FAERS Safety Report 4907894-1 (Version None)
Quarter: 2006Q1

REPORT INFORMATION
  Report Type: 
  Country: None (occurrence: None)
  Receive Date: 20060210
  Receipt Date: 20060201
  Transmission Date: 20060701
  Serious: Yes (Other)
  Sender: FDA-Public Use
  Company Number: PHBS2006GB01750

PATIENT
  Age: 59 Year
  Sex: Male

DRUGS (10)
  1. CYCLOSPORINE [Suspect]
     Indication: HEART TRANSPLANT
     Dosage: UNK, UNK
     Route: 065
  2. AZATHIOPRINE [Suspect]
     Indication: HEART TRANSPLANT
     Route: 065
  3. PREDNISOLONE [Concomitant]
     Indication: HEART TRANSPLANT
     Route: 065
  4. ANTITHYMOCYTE IMMUNOGLOBULIN [Concomitant]
     Indication: HEART TRANSPLANT
  5. ASPIRIN [Concomitant]
  6. PRAVASTATIN [Concomitant]
  7. AMLODIPINE [Concomitant]
  8. ENALAPRIL [Concomitant]
  9. BENDROFLUAZIDE [Concomitant]
  10. SIROLIMUS [Suspect]
     Indication: HEART TRANSPLANT
     Route: 065

REACTIONS (17)
  - BLOOD CREATININE INCREASED [None]
  - BLOOD UREA INCREASED [None]
  - C-REACTIVE PROTEIN INCREASED [None]
  - COMPUTERISED TOMOGRAM ABNORMAL [None]
  - CORONARY ARTERY STENOSIS [None]
  - CREATININE RENAL CLEARANCE DECREASED [None]
  - DYSPNOEA EXERTIONAL [None]
  - FATIGUE [None]
  - GLUCOSE TOLERANCE IMPAIRED [None]
  - MALAISE [None]
  - OXYGEN SATURATION DECREASED [None]
  - PNEUMONITIS [None]
  - PYREXIA [None]
  - RALES [None]
  - RENAL IMPAIRMENT [None]
  - TACHYPNOEA [None]
  - VASCULAR GRAFT COMPLICATION [None]
